FAERS Safety Report 11259723 (Version 1)
Quarter: 2015Q3

REPORT INFORMATION
  Report Type: Spontaneous
  Country: AU (occurrence: AU)
  Receive Date: 20150710
  Receipt Date: 20150710
  Transmission Date: 20151125
  Serious: Yes (Other)
  Sender: FDA-Public Use
  Company Number: PHHY2015AU082343

PATIENT
  Age: 55 Year
  Sex: Female

DRUGS (5)
  1. EXEMESTANE. [Suspect]
     Active Substance: EXEMESTANE
     Indication: BREAST CANCER METASTATIC
     Route: 065
     Dates: start: 20081228
  2. TAMOXIFEN [Suspect]
     Active Substance: TAMOXIFEN
     Indication: BREAST CANCER METASTATIC
     Route: 065
     Dates: start: 20110908
  3. FULVESTRANT [Suspect]
     Active Substance: FULVESTRANT
     Indication: BREAST CANCER METASTATIC
     Route: 065
     Dates: start: 20150313
  4. LETROZOLE. [Suspect]
     Active Substance: LETROZOLE
     Indication: BREAST CANCER METASTATIC
     Route: 065
     Dates: start: 20071127
  5. GOSERELIN [Suspect]
     Active Substance: GOSERELIN
     Indication: BREAST CANCER METASTATIC
     Route: 065
     Dates: start: 20071127

REACTIONS (5)
  - Meningioma [Unknown]
  - Pleural effusion [Unknown]
  - Breast cancer metastatic [Unknown]
  - Osteosclerosis [Unknown]
  - Malignant neoplasm progression [Unknown]

NARRATIVE: CASE EVENT DATE: 20150511
